FAERS Safety Report 18764202 (Version 2)
Quarter: 2021Q3

REPORT INFORMATION
  Report Type: Other
  Country: US (occurrence: US)
  Receive Date: 20210120
  Receipt Date: 20210820
  Transmission Date: 20211014
  Serious: Yes (Hospitalization, Other)
  Sender: FDA-Public Use
  Company Number: US-ROCHE-2748593

PATIENT
  Age: 47 Year
  Sex: Male
  Weight: 124.85 kg

DRUGS (2)
  1. OCREVUS [Suspect]
     Active Substance: OCRELIZUMAB
     Indication: RELAPSING MULTIPLE SCLEROSIS
     Route: 042
     Dates: start: 2019
  2. IRBESARTAN. [Concomitant]
     Active Substance: IRBESARTAN
     Indication: HYPERTENSION
     Dosage: 75MG TABLETS? TAKE HALF A TABLET DAILY
     Route: 048

REACTIONS (4)
  - Snake bite [Not Recovered/Not Resolved]
  - COVID-19 [Recovering/Resolving]
  - Pneumonia viral [Unknown]
  - Multiple sclerosis [Recovered/Resolved]

NARRATIVE: CASE EVENT DATE: 2020
